FAERS Safety Report 10586989 (Version 1)
Quarter: 2014Q4

REPORT INFORMATION
  Report Type: Spontaneous
  Country: US (occurrence: None)
  Receive Date: 20141114
  Receipt Date: 20141114
  Transmission Date: 20150529
  Serious: Yes (Life-Threatening, Hospitalization, Disabling)
  Sender: FDA-Public Use
  Company Number: None

PATIENT
  Age: 31 Year
  Sex: Male
  Weight: 72.58 kg

DRUGS (1)
  1. REMICADE [Suspect]
     Active Substance: INFLIXIMAB
     Indication: COLITIS ULCERATIVE
     Dosage: IV FLUID; EVERY SIX WEEKS, INTO A VEIN
     Route: 042
     Dates: start: 20120801, end: 20131001

REACTIONS (12)
  - Dysarthria [None]
  - Coma [None]
  - Dysphagia [None]
  - Loss of consciousness [None]
  - Meningitis bacterial [None]
  - Listeriosis [None]
  - Nausea [None]
  - Encephalitis [None]
  - Photophobia [None]
  - Headache [None]
  - Neck pain [None]
  - Cerebral infarction [None]

NARRATIVE: CASE EVENT DATE: 20131031
